FAERS Safety Report 25997422 (Version 3)
Quarter: 2025Q4

REPORT INFORMATION
  Report Type: Spontaneous
  Country: EU (occurrence: EU)
  Receive Date: 20251104
  Receipt Date: 20251228
  Transmission Date: 20260117
  Serious: Yes (Other)
  Sender: JOHNSON AND JOHNSON
  Company Number: None

PATIENT
  Age: 60 Year
  Sex: Female
  Weight: 55 kg

DRUGS (10)
  1. PALIPERIDONE PALMITATE [Suspect]
     Active Substance: PALIPERIDONE PALMITATE
     Indication: Schizophrenia
     Dosage: 525MG SINGLE SHOT
     Route: 030
     Dates: start: 20210317
  2. PALIPERIDONE PALMITATE [Suspect]
     Active Substance: PALIPERIDONE PALMITATE
  3. PALIPERIDONE PALMITATE [Suspect]
     Active Substance: PALIPERIDONE PALMITATE
  4. Risperidona 2mg [Concomitant]
     Indication: Product used for unknown indication
     Dosage: 1 CP + 0 + 1 CP
  5. Sinvastatina + Ezetimiba 40/10mg [Concomitant]
     Indication: Product used for unknown indication
     Dosage: 0 + 0 + 1 CP
  6. RISPERIDONE [Concomitant]
     Active Substance: RISPERIDONE
     Indication: Product used for unknown indication
     Dosage: 1 CP + 0 + 1 CP
  7. Lithium carbonate 400 mg [Concomitant]
     Indication: Product used for unknown indication
     Dosage: DOSE: 1/2 CP + 0 + 1 CP
  8. Valproate semisodium 500 mg [Concomitant]
     Indication: Product used for unknown indication
     Dosage: 1 CP + 0 + 1 CP
  9. Tri-hexifenidilo 5mg [Concomitant]
     Indication: Product used for unknown indication
     Dosage: 1 CP + 0 +1 CP
  10. ASPIRIN [Concomitant]
     Active Substance: ASPIRIN
     Indication: Product used for unknown indication
     Dosage: 0 + 1 CP + 0

REACTIONS (5)
  - Injection site oedema [Recovered/Resolved]
  - Injection site pain [Recovered/Resolved]
  - Injection site warmth [Recovered/Resolved]
  - Injection site erythema [Recovered/Resolved]
  - Pustule [Recovered/Resolved]

NARRATIVE: CASE EVENT DATE: 20250903
